FAERS Safety Report 18773166 (Version 1)
Quarter: 2021Q1

REPORT INFORMATION
  Report Type: Spontaneous
  Country: US (occurrence: US)
  Receive Date: 20210121
  Receipt Date: 20210121
  Transmission Date: 20210419
  Serious: No
  Sender: FDA-Public Use
  Company Number: None

PATIENT
  Age: 66 Year
  Sex: Female
  Weight: 76.5 kg

DRUGS (11)
  1. VITAMIN C [Concomitant]
     Active Substance: ASCORBIC ACID
  2. FLONASE [Concomitant]
     Active Substance: FLUTICASONE PROPIONATE
  3. VIT D [Concomitant]
     Active Substance: VITAMIN D NOS
  4. RED RICE YEAST [Concomitant]
     Active Substance: DIETARY SUPPLEMENT
  5. MELATONIN [Concomitant]
     Active Substance: MELATONIN
  6. TURMERIC [Concomitant]
     Active Substance: HERBALS\TURMERIC
  7. CPAP [Concomitant]
     Active Substance: DEVICE
  8. ZINC. [Concomitant]
     Active Substance: ZINC
  9. LATANOPROST. [Concomitant]
     Active Substance: LATANOPROST
  10. XARELTO [Suspect]
     Active Substance: RIVAROXABAN
     Indication: ATRIAL FIBRILLATION
     Dates: start: 20200201
  11. QUERCITIN [Concomitant]

REACTIONS (2)
  - Hypersensitivity [None]
  - Chapped lips [None]
